FAERS Safety Report 7769941-1 (Version None)
Quarter: 2011Q3

REPORT INFORMATION
  Report Type: 
  Country: None (occurrence: None)
  Receive Date: 20110922
  Receipt Date: 20110920
  Transmission Date: 20111222
  Serious: Yes (Hospitalization, Disabling)
  Sender: FDA-Public Use
  Company Number: US-GLAXOSMITHKLINE-A0933584A

PATIENT
  Age: 7 Year
  Sex: Male

DRUGS (7)
  1. ADVAIR DISKUS 100/50 [Suspect]
     Dosage: 2PUFF TWICE PER DAY
     Route: 055
     Dates: start: 20070202, end: 20110101
  2. TEGRETOL [Concomitant]
  3. XOPENEX [Concomitant]
  4. ATENOLOL [Concomitant]
  5. SINGULAIR [Concomitant]
  6. MUCINEX [Concomitant]
  7. ADVAIR DISKUS 100/50 [Suspect]
     Indication: ASTHMA
     Dosage: 2PUFF TWICE PER DAY
     Route: 055
     Dates: start: 20090731

REACTIONS (13)
  - TACHYCARDIA [None]
  - MYOCLONUS [None]
  - ASTHMA [None]
  - PARALYSIS [None]
  - HYPOXIC-ISCHAEMIC ENCEPHALOPATHY [None]
  - CARDIO-RESPIRATORY ARREST [None]
  - BRONCHITIS [None]
  - IMPAIRED GASTRIC EMPTYING [None]
  - LOBAR PNEUMONIA [None]
  - SALIVARY HYPERSECRETION [None]
  - UNRESPONSIVE TO STIMULI [None]
  - ASPIRATION [None]
  - RESPIRATORY DISTRESS [None]
